FAERS Safety Report 9350836 (Version 1)
Quarter: 2013Q2

REPORT INFORMATION
  Report Type: Spontaneous
  Country: MX (occurrence: MX)
  Receive Date: 20130617
  Receipt Date: 20130617
  Transmission Date: 20140414
  Serious: Yes (Death)
  Sender: FDA-Public Use
  Company Number: MX-ROCHE-1194604

PATIENT
  Sex: Female

DRUGS (4)
  1. ZELBORAF [Suspect]
     Indication: MALIGNANT MELANOMA
     Route: 048
     Dates: start: 20120719
  2. ZELBORAF [Suspect]
     Indication: METASTASES TO BONE
  3. ZOMETA [Concomitant]
     Route: 042
  4. XGEVA [Concomitant]
     Route: 058

REACTIONS (25)
  - Metastases to liver [Fatal]
  - Keratoacanthoma [Unknown]
  - Melanocytic naevus [Not Recovered/Not Resolved]
  - Alopecia [Recovering/Resolving]
  - Keratosis pilaris [Not Recovered/Not Resolved]
  - Ocular hyperaemia [Not Recovered/Not Resolved]
  - Arthralgia [Recovering/Resolving]
  - Fatigue [Not Recovered/Not Resolved]
  - Gastritis [Recovering/Resolving]
  - Hypercholesterolaemia [Not Recovered/Not Resolved]
  - Hypertension [Not Recovered/Not Resolved]
  - Dry skin [Not Recovered/Not Resolved]
  - Decreased appetite [Not Recovered/Not Resolved]
  - Weight decreased [Recovering/Resolving]
  - Dysgeusia [Not Recovered/Not Resolved]
  - Gingivitis [Recovering/Resolving]
  - Pyrexia [Not Recovered/Not Resolved]
  - Nausea [Recovering/Resolving]
  - Vomiting [Recovered/Resolved]
  - Diarrhoea [Recovering/Resolving]
  - Erythema nodosum [Unknown]
  - Anxiety [Not Recovered/Not Resolved]
  - Musculoskeletal pain [Not Recovered/Not Resolved]
  - Stomatitis [Recovered/Resolved]
  - Skin burning sensation [Recovering/Resolving]
